FAERS Safety Report 16810734 (Version 1)
Quarter: 2019Q4

REPORT INFORMATION
  Report Type: Spontaneous
  Country: CA (occurrence: CA)
  Receive Date: 20190916
  Receipt Date: 20190916
  Transmission Date: 20200122
  Serious: Yes (Hospitalization, Disabling, Other)
  Sender: FDA-Public Use
  Company Number: None

PATIENT
  Age: 78 Year
  Sex: Male
  Weight: 81 kg

DRUGS (1)
  1. PROSCAR [Suspect]
     Active Substance: FINASTERIDE
     Indication: PROSTATOMEGALY
     Dosage: ?          QUANTITY:1 TABLET(S);?
     Route: 048
     Dates: start: 19950101, end: 20180501

REACTIONS (6)
  - Arthralgia [None]
  - Upper-airway cough syndrome [None]
  - Gout [None]
  - Therapeutic response unexpected [None]
  - Decreased activity [None]
  - Pain [None]

NARRATIVE: CASE EVENT DATE: 20110101
